FAERS Safety Report 24548499 (Version 2)
Quarter: 2024Q4

REPORT INFORMATION
  Report Type: Spontaneous
  Country: GB (occurrence: GB)
  Receive Date: 20241025
  Receipt Date: 20241211
  Transmission Date: 20250115
  Serious: Yes (Hospitalization, Other)
  Sender: MYLAN
  Company Number: GB-MYLANLABS-2024M1096728

PATIENT
  Age: 69 Year
  Sex: Female

DRUGS (3)
  1. CLOZARIL [Suspect]
     Active Substance: CLOZAPINE
     Indication: Schizophrenia
     Dosage: BID- TWICE A DAY (100MG MORNING 200MG NOCTE)
     Route: 048
     Dates: start: 20141203, end: 20241018
  2. DEPAKOTE [Concomitant]
     Active Substance: DIVALPROEX SODIUM
     Indication: Schizophrenia
     Dosage: 500 MILLIGRAM, BID (500MG, BD)
     Route: 048
  3. PROCYCLIDINE [Concomitant]
     Active Substance: PROCYCLIDINE
     Indication: Extrapyramidal disorder
     Dosage: 5 MILLIGRAM, BID (5MG BD)
     Route: 048

REACTIONS (5)
  - Schizophrenia [Unknown]
  - Urinary tract infection [Unknown]
  - Delirium [Unknown]
  - Constipation [Unknown]
  - Therapy cessation [Unknown]

NARRATIVE: CASE EVENT DATE: 20241018
